FAERS Safety Report 8416394-6 (Version None)
Quarter: 2012Q2

REPORT INFORMATION
  Report Type: 
  Country: None (occurrence: None)
  Receive Date: 20120606
  Receipt Date: 20120601
  Transmission Date: 20120825
  Serious: Yes (Death, Hospitalization)
  Sender: FDA-Public Use
  Company Number: US-CELGENEUS-163-21880-11030555

PATIENT
  Sex: Female
  Weight: 74.002 kg

DRUGS (7)
  1. REVLIMID [Suspect]
     Dosage: 10 MILLIGRAM
     Route: 048
     Dates: start: 20110218, end: 20110224
  2. BORTEZOMIB [Suspect]
     Dosage: 1.3 MILLIGRAM/SQ. METER
     Route: 048
     Dates: start: 20110218, end: 20110225
  3. GLIPIZIDE [Concomitant]
     Route: 065
  4. CIMETIDINE [Concomitant]
     Route: 065
  5. LIPITOR [Concomitant]
     Route: 065
  6. LISINOPRIL [Concomitant]
     Route: 065
  7. ALLOPURINOL [Concomitant]
     Route: 065

REACTIONS (9)
  - DYSPNOEA [None]
  - ACUTE MYELOID LEUKAEMIA [None]
  - NEUTROPENIA [None]
  - SEPSIS [None]
  - HYPOTENSION [None]
  - PLEURAL EFFUSION [None]
  - ASTHENIA [None]
  - ELECTROLYTE IMBALANCE [None]
  - RENAL FAILURE [None]
